FAERS Safety Report 8901575 (Version 1)
Quarter: 2012Q4

REPORT INFORMATION
  Report Type: Spontaneous
  Country: US (occurrence: None)
  Receive Date: 20121108
  Receipt Date: 20121108
  Transmission Date: 20130627
  Serious: Yes (Disabling)
  Sender: FDA-Public Use
  Company Number: None

PATIENT
  Age: 29 Year
  Sex: Male
  Weight: 101.61 kg

DRUGS (1)
  1. MEFLOQUINE LARIAM UNKNOWN ROCHE [Suspect]
     Indication: MALARIA
     Dosage: one pill once a week
     Route: 048
     Dates: start: 20030228, end: 20030820

REACTIONS (4)
  - Sleep disorder [None]
  - Anxiety [None]
  - Depression [None]
  - Post-traumatic stress disorder [None]
